FAERS Safety Report 5132246-1 (Version None)
Quarter: 2006Q4

REPORT INFORMATION
  Report Type: 
  Country: None (occurrence: None)
  Receive Date: 20061017
  Receipt Date: 20060929
  Transmission Date: 20070319
  Serious: Yes (Death)
  Sender: FDA-Public Use
  Company Number: 2004S1000174

PATIENT
  Age: 37 Year
  Sex: Female
  Weight: 58 kg

DRUGS (5)
  1. CUBICIN [Suspect]
     Indication: ENDOCARDITIS
     Dosage: 350 MG; Q24H; IV
     Route: 042
  2. CUBICIN [Suspect]
     Indication: STAPHYLOCOCCAL BACTERAEMIA
     Dosage: 350 MG; Q24H; IV
     Route: 042
  3. VANCOMYCIN [Concomitant]
  4. PRIMAXIN [Concomitant]
  5. CLINDAMYCIN [Concomitant]

REACTIONS (2)
  - HAEMORRHAGIC STROKE [None]
  - THERAPY NON-RESPONDER [None]
